FAERS Safety Report 5820636-0 (Version None)
Quarter: 2008Q3

REPORT INFORMATION
  Report Type: 
  Country: None (occurrence: None)
  Receive Date: 20080724
  Receipt Date: 20071220
  Transmission Date: 20090109
  Serious: Yes (Hospitalization)
  Sender: FDA-Public Use
  Company Number: A0699991A

PATIENT
  Age: 77 Year
  Sex: Male

DRUGS (9)
  1. AVANDIA [Suspect]
     Dosage: 2MG TWICE PER DAY
     Route: 048
     Dates: end: 20071218
  2. FLU SHOT [Concomitant]
  3. LIPITOR [Concomitant]
  4. ZETIA [Concomitant]
  5. PLAVIX [Concomitant]
  6. TOPROL-XL [Concomitant]
  7. AVODART [Concomitant]
  8. CARDURA [Concomitant]
  9. MICRONASE [Concomitant]

REACTIONS (1)
  - ARTERIAL OCCLUSIVE DISEASE [None]
